FAERS Safety Report 7769466-3 (Version None)
Quarter: 2011Q3

REPORT INFORMATION
  Report Type: 
  Country: None (occurrence: None)
  Receive Date: 20110922
  Receipt Date: 20110718
  Transmission Date: 20111222
  Serious: No
  Sender: FDA-Public Use
  Company Number: US-ASTRAZENECA-2010SE57912

PATIENT
  Age: 764 Month
  Sex: Female
  Weight: 83.5 kg

DRUGS (11)
  1. RANITIDINE [Concomitant]
  2. CLONAZEPAM [Concomitant]
  3. TIZANIDINE HCL [Concomitant]
  4. SEROQUEL [Suspect]
     Indication: DEPRESSION
     Route: 048
     Dates: start: 20090401
  5. NAPROXEN [Concomitant]
  6. FLUOXETINE [Concomitant]
  7. VICODIN [Concomitant]
  8. AMLODIPINE [Concomitant]
  9. PROCHLORPERAZINE [Concomitant]
  10. DARVOCET [Concomitant]
  11. TRAMADOL HCL [Concomitant]

REACTIONS (6)
  - MIDDLE INSOMNIA [None]
  - VOMITING [None]
  - ABDOMINAL PAIN UPPER [None]
  - DIARRHOEA [None]
  - OFF LABEL USE [None]
  - DRUG DOSE OMISSION [None]
